FAERS Safety Report 5735833-2 (Version None)
Quarter: 2008Q2

REPORT INFORMATION
  Report Type: 
  Country: None (occurrence: None)
  Receive Date: 20080509
  Receipt Date: 20080509
  Transmission Date: 20081010
  Serious: Yes (Life-Threatening, Hospitalization, Disabling, Other)
  Sender: FDA-Public Use
  Company Number: None

PATIENT
  Age: 37 Year
  Sex: Male
  Weight: 64.4108 kg

DRUGS (1)
  1. LITHIUM CARBONATE [Suspect]
     Indication: BIPOLAR DISORDER
     Dosage: BEEN TOO LONG TO REMEMBER  MEMORY LOSS ALSO A SIDE AFFECT

REACTIONS (9)
  - BIPOLAR DISORDER [None]
  - BLOOD CALCIUM INCREASED [None]
  - BLOOD SODIUM INCREASED [None]
  - CEREBROVASCULAR ACCIDENT [None]
  - CONDITION AGGRAVATED [None]
  - ECONOMIC PROBLEM [None]
  - MARITAL PROBLEM [None]
  - MUSCLE SPASMS [None]
  - PARATHYROID GLAND OPERATION [None]
